FAERS Safety Report 24798493 (Version 1)
Quarter: 2025Q1

REPORT INFORMATION
  Report Type: Spontaneous
  Country: US (occurrence: US)
  Receive Date: 20250102
  Receipt Date: 20250102
  Transmission Date: 20250409
  Serious: Yes (Other)
  Sender: ABBVIE
  Company Number: US-ABBVIE-6068329

PATIENT
  Sex: Male

DRUGS (1)
  1. SKYRIZI [Suspect]
     Active Substance: RISANKIZUMAB-RZAA
     Indication: Psoriasis
     Route: 058

REACTIONS (10)
  - Neoplasm malignant [Unknown]
  - Immunodeficiency [Unknown]
  - Infection [Recovered/Resolved]
  - Cough [Unknown]
  - Night sweats [Unknown]
  - Musculoskeletal chest pain [Unknown]
  - Muscle spasms [Unknown]
  - Respiratory tract congestion [Unknown]
  - Rhinorrhoea [Unknown]
  - Autoimmune disorder [Unknown]
